FAERS Safety Report 7635151-1 (Version None)
Quarter: 2011Q3

REPORT INFORMATION
  Report Type: 
  Country: None (occurrence: None)
  Receive Date: 20110726
  Receipt Date: 20110712
  Transmission Date: 20111222
  Serious: Yes (Hospitalization, Other)
  Sender: FDA-Public Use
  Company Number: US-BAYER-2011-001506

PATIENT
  Age: 30 Year
  Sex: Female
  Weight: 65.76 kg

DRUGS (5)
  1. ZYRTEC [Concomitant]
     Indication: MULTIPLE ALLERGIES
     Dosage: UNK UNK, PRN
  2. YAZ [Suspect]
     Indication: ACNE
     Dosage: UNK
     Route: 048
     Dates: start: 20070801, end: 20071001
  3. ZOFRAN [Concomitant]
     Indication: HEADACHE
     Dosage: 4 MG, UNK
     Route: 042
     Dates: start: 20070927, end: 20070927
  4. TORDAL [Concomitant]
     Indication: HEADACHE
     Dosage: 60 MG, UNK
     Route: 030
     Dates: start: 20070927, end: 20070927
  5. EXCEDRIN (MIGRAINE) [Concomitant]
     Indication: HEADACHE
     Dosage: UNK
     Dates: start: 20070727

REACTIONS (5)
  - CEREBELLAR INFARCTION [None]
  - CEREBROVASCULAR ACCIDENT [None]
  - THALAMIC INFARCTION [None]
  - EMOTIONAL DISTRESS [None]
  - PAIN [None]
